FAERS Safety Report 8100174-5 (Version None)
Quarter: 2012Q1

REPORT INFORMATION
  Report Type: 
  Country: None (occurrence: None)
  Receive Date: 20120129
  Receipt Date: 20111110
  Transmission Date: 20120608
  Serious: No
  Sender: FDA-Public Use
  Company Number: US-ABBOTT-11P-163-0846194-00

PATIENT
  Age: 36 Year
  Sex: Female

DRUGS (18)
  1. ACIDOPHILUS [Concomitant]
     Indication: ANTIFUNGAL PROPHYLAXIS
     Dates: start: 20060101
  2. BENADRYL [Concomitant]
     Indication: PRODUCT USED FOR UNKNOWN INDICATION
  3. ALBUTEROL [Concomitant]
     Indication: ASTHMA
     Dates: start: 20100101
  4. TRAMADOL HCL [Concomitant]
     Indication: HEADACHE
  5. ACETAMINOPHEN [Concomitant]
     Indication: PAIN
  6. HUMIRA [Suspect]
     Dates: start: 20110812
  7. HUMIRA [Suspect]
     Indication: CROHN'S DISEASE
     Dosage: INITIAL LOADING DOSE
     Dates: start: 20110812
  8. ASACOL [Concomitant]
     Indication: CROHN'S DISEASE
     Dosage: PILLS
  9. TRAMADOL HCL [Concomitant]
     Indication: PAIN
     Dosage: 1/2 TAB PRN
  10. TRAMADOL HCL [Concomitant]
     Indication: CROHN'S DISEASE
  11. IRON SR [Concomitant]
     Indication: MINERAL SUPPLEMENTATION
     Dates: start: 20100101
  12. TRAMADOL HCL [Concomitant]
     Dosage: PRN
  13. PROBIOTICS [Concomitant]
     Indication: ANTIFUNGAL PROPHYLAXIS
     Dates: start: 20050101
  14. TRAMADOL HCL [Concomitant]
  15. ADVAIR DISKUS 100/50 [Concomitant]
     Indication: ASTHMA
     Dosage: 250/50 PRN
  16. ALLER-TEC D [Concomitant]
     Indication: PRODUCT USED FOR UNKNOWN INDICATION
     Dates: start: 20110101
  17. MULTI-VITAMINS [Concomitant]
     Indication: VITAMIN SUPPLEMENTATION
     Dates: start: 20070101
  18. ADVAIR DISKUS 100/50 [Concomitant]
     Dosage: 250/50 PRN
     Dates: start: 20080101

REACTIONS (2)
  - PAIN [None]
  - INJECTION SITE HAEMATOMA [None]
